FAERS Safety Report 6144407-3 (Version None)
Quarter: 2009Q2

REPORT INFORMATION
  Report Type: 
  Country: None (occurrence: None)
  Receive Date: 20090401
  Receipt Date: 20090323
  Transmission Date: 20091009
  Serious: Yes (Other)
  Sender: FDA-Public Use
  Company Number: ESP09000037

PATIENT
  Age: 61 Year
  Sex: Female

DRUGS (5)
  1. ACREL (RISEDRONATE SODIUM) TABLET, 35MG [Suspect]
     Indication: OSTEOPOROSIS
     Dosage: 35 MG, 1 /WEEK, ORAL
     Route: 048
     Dates: start: 20060901, end: 20090114
  2. METOTREXATO /00113801/ (METHOTREXATE) [Concomitant]
  3. CODEROL (GLUCOSAMINE SULFATE) POWDER FOR ORAL SOLUTION, 1500 MG [Concomitant]
  4. DACORTIN (PREDNISONE) TABLET, 5 MG [Concomitant]
  5. LEDERFOLINE (CALCIUM FOLINATE) TABLET, 15 MG [Concomitant]

REACTIONS (1)
  - HYPOCALCAEMIA [None]
